FAERS Safety Report 6202189-0 (Version None)
Quarter: 2009Q2

REPORT INFORMATION
  Report Type: 
  Country: None (occurrence: None)
  Receive Date: 20090526
  Receipt Date: 20090519
  Transmission Date: 20091009
  Serious: Yes (Death, Other)
  Sender: FDA-Public Use
  Company Number: US-PFIZER INC-2005095404

PATIENT
  Sex: Male
  Weight: 71.7 kg

DRUGS (17)
  1. MARAVIROC [Suspect]
     Indication: HIV TEST POSITIVE
     Route: 048
     Dates: start: 20050511, end: 20050610
  2. CLINDAMYCIN HCL [Concomitant]
  3. LEVETIRACETAM [Concomitant]
  4. VALACYCLOVIR HCL [Concomitant]
  5. HEPARIN [Concomitant]
  6. ZOSYN [Concomitant]
  7. INSULIN [Concomitant]
  8. MEPRON [Concomitant]
  9. VALGANCICLOVIR HCL [Concomitant]
  10. LEUCOVORIN CALCIUM [Concomitant]
  11. VANCOMYCIN HCL [Concomitant]
  12. LORAZEPAM [Concomitant]
  13. NYSTATIN [Concomitant]
  14. PREVACID [Concomitant]
  15. PENTAMIDINE ISETHIONATE [Concomitant]
  16. CALCIUM CARBONATE [Concomitant]
  17. FLUCONAZOLE [Concomitant]

REACTIONS (2)
  - CLOSTRIDIAL INFECTION [None]
  - DISEASE PROGRESSION [None]
